FAERS Safety Report 4740352-6 (Version None)
Quarter: 2005Q3

REPORT INFORMATION
  Report Type: 
  Country: None (occurrence: None)
  Receive Date: 20050810
  Receipt Date: 20040708
  Transmission Date: 20060218
  Serious: No
  Sender: FDA-Public Use
  Company Number: US-GLAXOSMITHKLINE-A0519492A

PATIENT
  Sex: Female

DRUGS (4)
  1. PAXIL [Suspect]
     Indication: DRUG USE FOR UNKNOWN INDICATION
  2. PREMARIN [Concomitant]
     Indication: DRUG USE FOR UNKNOWN INDICATION
     Dosage: .625MG PER DAY
  3. ZOCOR [Concomitant]
     Dosage: 10MG PER DAY
     Route: 048
  4. PHENTERMINE [Concomitant]
     Indication: DRUG USE FOR UNKNOWN INDICATION
     Dosage: 30MG PER DAY
     Route: 048

REACTIONS (1)
  - DRUG WITHDRAWAL SYNDROME [None]
